FAERS Safety Report 25261061 (Version 1)
Quarter: 2025Q2

REPORT INFORMATION
  Report Type: Spontaneous
  Country: GB (occurrence: GB)
  Receive Date: 20250501
  Receipt Date: 20250501
  Transmission Date: 20250717
  Serious: Yes (Death, Life-Threatening, Other)
  Sender: PFIZER
  Company Number: None

PATIENT
  Age: 77 Year
  Sex: Male

DRUGS (15)
  1. METHOTREXATE SODIUM [Suspect]
     Active Substance: METHOTREXATE SODIUM
  2. PREDNISOLONE [Concomitant]
     Active Substance: PREDNISOLONE
  3. ACETAMINOPHEN [Concomitant]
     Active Substance: ACETAMINOPHEN
  4. OMEPRAZOLE [Concomitant]
     Active Substance: OMEPRAZOLE
  5. AMLODIPINE [Concomitant]
     Active Substance: AMLODIPINE BESYLATE
  6. CALCIUM ACETATE [Concomitant]
     Active Substance: CALCIUM ACETATE
  7. ALFACALCIDOL [Concomitant]
     Active Substance: ALFACALCIDOL
  8. ALLOPURINOL [Concomitant]
     Active Substance: ALLOPURINOL
  9. FOLIC ACID [Concomitant]
     Active Substance: FOLIC ACID
  10. BISOPROLOL [Concomitant]
     Active Substance: BISOPROLOL
  11. DIGOXIN [Concomitant]
     Active Substance: DIGOXIN
  12. ATORVASTATIN [Concomitant]
     Active Substance: ATORVASTATIN
  13. SODIUM BICARBONATE [Concomitant]
     Active Substance: SODIUM BICARBONATE
  14. QUININE [Concomitant]
     Active Substance: QUININE
  15. WARFARIN [Concomitant]
     Active Substance: WARFARIN

REACTIONS (2)
  - Pancytopenia [Fatal]
  - Mucosal inflammation [Unknown]
